FAERS Safety Report 23741133 (Version 1)
Quarter: 2024Q2

REPORT INFORMATION
  Report Type: Report from Study
  Country: DE (occurrence: DE)
  Receive Date: 20240415
  Receipt Date: 20240415
  Transmission Date: 20240716
  Serious: Yes (Hospitalization)
  Sender: FDA-Public Use
  Company Number: DE-UCBSA-2022052513

PATIENT
  Sex: Female
  Weight: 90 kg

DRUGS (3)
  1. BIMEKIZUMAB [Suspect]
     Active Substance: BIMEKIZUMAB
     Indication: Psoriasis
     Dosage: 320 MILLIGRAM, 3X
     Route: 058
     Dates: start: 20220330
  2. CHOLECALCIFEROL [Concomitant]
     Active Substance: CHOLECALCIFEROL
     Indication: Vitamin D deficiency
     Dosage: 20000 IE, 1X EVERY 2 WEEKS
     Route: 048
     Dates: start: 20220601
  3. ACETAMINOPHEN [Concomitant]
     Active Substance: ACETAMINOPHEN
     Indication: Headache
     Dosage: UNK
     Dates: start: 20220802

REACTIONS (11)
  - Gastroenteritis viral [Recovered/Resolved]
  - Blood pressure decreased [Unknown]
  - Tachycardia [Unknown]
  - Asthenia [Unknown]
  - Otitis media [Recovered/Resolved]
  - Spinal pain [Unknown]
  - White blood cell count increased [Unknown]
  - Platelet count decreased [Unknown]
  - Headache [Recovered/Resolved]
  - Diarrhoea [Recovered/Resolved]
  - SARS-CoV-2 test negative [Unknown]

NARRATIVE: CASE EVENT DATE: 20220101
